FAERS Safety Report 7042081-5 (Version None)
Quarter: 2010Q4

REPORT INFORMATION
  Report Type: 
  Country: None (occurrence: None)
  Receive Date: 20101013
  Receipt Date: 20100421
  Transmission Date: 20110411
  Serious: No
  Sender: FDA-Public Use
  Company Number: US-ASTRAZENECA-2010SE17843

PATIENT
  Sex: Female

DRUGS (3)
  1. SYMBICORT [Suspect]
     Indication: CHRONIC OBSTRUCTIVE PULMONARY DISEASE
     Dosage: 160 MCG
     Route: 055
     Dates: start: 20100408
  2. SYMBICORT [Suspect]
     Indication: EMPHYSEMA
     Dosage: 160 MCG
     Route: 055
     Dates: start: 20100408
  3. ZAMETA [Concomitant]

REACTIONS (10)
  - DECREASED APPETITE [None]
  - DIZZINESS [None]
  - DYSPNOEA [None]
  - HEADACHE [None]
  - IMPAIRED DRIVING ABILITY [None]
  - NAUSEA [None]
  - OSTEOPOROSIS [None]
  - PYREXIA [None]
  - SPUTUM INCREASED [None]
  - TREMOR [None]
